FAERS Safety Report 5538383-1 (Version None)
Quarter: 2007Q4

REPORT INFORMATION
  Report Type: 
  Country: None (occurrence: None)
  Receive Date: 20071205
  Receipt Date: 20071120
  Transmission Date: 20080405
  Serious: Yes (Hospitalization)
  Sender: FDA-Public Use
  Company Number: S07-FRA-05783-01

PATIENT
  Age: 51 Year
  Sex: Female

DRUGS (5)
  1. ESCITALOPRAM [Suspect]
     Indication: DEPRESSION
     Dosage: 10 MG QD PO
     Route: 048
     Dates: start: 20070701, end: 20071007
  2. ESCITALOPRAM [Suspect]
     Indication: DEPRESSION
     Dosage: 10 MG QD PO
     Route: 048
     Dates: start: 20070420, end: 20070601
  3. ESCITALOPRAM [Suspect]
     Indication: DEPRESSION
     Dosage: 20 MG QD PO
     Route: 048
     Dates: start: 20070601, end: 20070701
  4. ESPERAL (DISULFIRAM) [Suspect]
     Dosage: 1 TABLET QD PO
     Route: 048
     Dates: start: 20070504, end: 20071007
  5. ALCOHOL [Suspect]
     Dates: start: 20071005

REACTIONS (2)
  - ALCOHOL INTERACTION [None]
  - CONFUSIONAL STATE [None]
